FAERS Safety Report 6370215-4 (Version None)
Quarter: 2009Q3

REPORT INFORMATION
  Report Type: 
  Country: None (occurrence: None)
  Receive Date: 20090923
  Receipt Date: 20090921
  Transmission Date: 20100115
  Serious: Yes (Hospitalization, Other)
  Sender: FDA-Public Use
  Company Number: US-ABBOTT-09P-163-0597808-00

PATIENT
  Sex: Female
  Weight: 122.58 kg

DRUGS (6)
  1. TRICOR [Suspect]
     Indication: BLOOD TRIGLYCERIDES INCREASED
     Route: 048
     Dates: start: 20040101
  2. GLUCOPHAGE [Concomitant]
     Indication: DIABETES MELLITUS
     Route: 048
  3. PRILOSEC OTC [Concomitant]
     Indication: DYSPEPSIA
     Route: 048
  4. TOPAMAX [Concomitant]
     Indication: MIGRAINE
     Route: 048
  5. FISH OIL [Concomitant]
     Indication: MEDICAL DIET
     Route: 048
  6. THYTROPHIN [Concomitant]
     Indication: MEDICAL DIET
     Dosage: WHOLE FOODS MFR
     Route: 048

REACTIONS (4)
  - CONVULSION [None]
  - EXPIRED DRUG ADMINISTERED [None]
  - HAEMORRHAGE INTRACRANIAL [None]
  - HEADACHE [None]
